FAERS Safety Report 7688985-1 (Version None)
Quarter: 2011Q3

REPORT INFORMATION
  Report Type: 
  Country: None (occurrence: None)
  Receive Date: 20110817
  Receipt Date: 20110810
  Transmission Date: 20111222
  Serious: Yes (Death, Other)
  Sender: FDA-Public Use
  Company Number: PHHY2011BR72313

PATIENT
  Sex: Male

DRUGS (2)
  1. FORMOTEROL FUMARATE [Suspect]
     Dosage: 1 INHALATION IN THE MORNING AND 1 AT NIGHT
  2. FORMOTEROL FUMARATE [Suspect]
     Indication: BRONCHITIS CHRONIC
     Dosage: 1 DF, DAILY

REACTIONS (9)
  - DRY THROAT [None]
  - ACUTE MYOCARDIAL INFARCTION [None]
  - ISCHAEMIA [None]
  - WHEEZING [None]
  - DYSPNOEA [None]
  - BRONCHITIS [None]
  - MALAISE [None]
  - HYPERTENSION [None]
  - COUGH [None]
